FAERS Safety Report 20556653 (Version 3)
Quarter: 2022Q3

REPORT INFORMATION
  Report Type: Report from Study
  Country: CA (occurrence: CA)
  Receive Date: 20220307
  Receipt Date: 20220928
  Transmission Date: 20221027
  Serious: Yes (Hospitalization, Other)
  Sender: FDA-Public Use
  Company Number: CA-JNJFOC-20211008740

PATIENT
  Age: 25 Year
  Sex: Female

DRUGS (1)
  1. REMICADE [Suspect]
     Active Substance: INFLIXIMAB
     Indication: Crohn^s disease
     Dosage: THERAPY START DATE : 09-SEP-2021,16-AUG-2022?LAST INFUSED ON 24-JUN-2022
     Route: 041
     Dates: start: 20200412

REACTIONS (4)
  - Hyperemesis gravidarum [Not Recovered/Not Resolved]
  - Exposure during pregnancy [Recovered/Resolved]
  - Mastitis [Recovered/Resolved]
  - COVID-19 [Recovered/Resolved]

NARRATIVE: CASE EVENT DATE: 20210101
